FAERS Safety Report 4807786-2 (Version None)
Quarter: 2005Q4

REPORT INFORMATION
  Report Type: 
  Country: None (occurrence: None)
  Receive Date: 20051020
  Receipt Date: 20051011
  Transmission Date: 20060501
  Serious: Yes (Life-Threatening, Hospitalization)
  Sender: FDA-Public Use
  Company Number: 2005132772

PATIENT
  Age: 50 Year
  Sex: Female
  Weight: 54 kg

DRUGS (2)
  1. SULFASALAZINE [Suspect]
     Indication: RHEUMATOID ARTHRITIS
     Dosage: 1500 MG, ORAL
     Route: 048
     Dates: start: 20050802, end: 20050920
  2. PREDNISONE [Concomitant]

REACTIONS (5)
  - AGRANULOCYTOSIS [None]
  - CHILLS [None]
  - LEUKOPENIA [None]
  - POLYCYTHAEMIA [None]
  - PYREXIA [None]
